FAERS Safety Report 24377317 (Version 1)
Quarter: 2024Q3

REPORT INFORMATION
  Report Type: Spontaneous
  Country: US (occurrence: None)
  Receive Date: 20240927
  Receipt Date: 20240927
  Transmission Date: 20241017
  Serious: No
  Sender: Public
  Company Number: None

PATIENT
  Age: 61 Year
  Sex: Male

DRUGS (1)
  1. BACLOFEN [Suspect]
     Active Substance: BACLOFEN
     Indication: Muscle spasms
     Dates: start: 20230707, end: 20231020

REACTIONS (4)
  - Anxiety [None]
  - Delirium [None]
  - Delusion [None]
  - Hallucination [None]

NARRATIVE: CASE EVENT DATE: 20231107
